FAERS Safety Report 22319556 (Version 1)
Quarter: 2023Q2

REPORT INFORMATION
  Report Type: Report from Study
  Country: US (occurrence: US)
  Receive Date: 20230515
  Receipt Date: 20230515
  Transmission Date: 20230722
  Serious: No
  Sender: FDA-Public Use
  Company Number: US-ABBVIE-4291060

PATIENT
  Age: 49 Year
  Sex: Female
  Weight: 86.182 kg

DRUGS (2)
  1. HUMIRA [Suspect]
     Active Substance: ADALIMUMAB
     Indication: Psoriasis
     Dosage: CITRATE FREE
     Route: 058
     Dates: start: 20221001, end: 20221207
  2. HUMIRA [Suspect]
     Active Substance: ADALIMUMAB
     Route: 058

REACTIONS (3)
  - Psoriatic arthropathy [Recovered/Resolved]
  - Therapeutic product effect incomplete [Unknown]
  - Arthritis bacterial [Unknown]

NARRATIVE: CASE EVENT DATE: 20220201
